FAERS Safety Report 5804496-X (Version None)
Quarter: 2008Q3

REPORT INFORMATION
  Report Type: 
  Country: None (occurrence: None)
  Receive Date: 20080709
  Receipt Date: 20080709
  Transmission Date: 20090109
  Serious: Yes (Hospitalization)
  Sender: FDA-Public Use
  Company Number: B0528262A

PATIENT
  Age: 75 Year
  Sex: Female

DRUGS (5)
  1. DIGOXIN [Suspect]
     Dosage: .125MG PER DAY
     Route: 048
     Dates: start: 20080329, end: 20080417
  2. DOMPERIDONE [Concomitant]
     Indication: DYSPEPSIA
     Dosage: 10MCG PER DAY
     Route: 048
  3. FUROSEMIDE [Concomitant]
     Indication: ESSENTIAL HYPERTENSION
     Dosage: 25MG PER DAY
     Route: 048
     Dates: start: 20040101, end: 20080417
  4. FRUSEMIDE + SPIRONOLACTONE [Concomitant]
     Indication: ESSENTIAL HYPERTENSION
     Route: 048
     Dates: start: 20040101, end: 20080417
  5. VALSARTAN AND HYDROCHLOROTHIAZIDE [Concomitant]
     Indication: ESSENTIAL HYPERTENSION
     Dates: start: 20040101, end: 20080417

REACTIONS (5)
  - CARDIOACTIVE DRUG LEVEL INCREASED [None]
  - DYSPEPSIA [None]
  - EATING DISORDER [None]
  - ELECTROCARDIOGRAM REPOLARISATION ABNORMALITY [None]
  - VOMITING [None]
